FAERS Safety Report 7362341-8 (Version None)
Quarter: 2011Q1

REPORT INFORMATION
  Report Type: 
  Country: None (occurrence: None)
  Receive Date: 20110318
  Receipt Date: 20110310
  Transmission Date: 20110831
  Serious: Yes (Other)
  Sender: FDA-Public Use
  Company Number: DE-BAYER-2011-021893

PATIENT
  Age: 25 Year
  Sex: Female

DRUGS (1)
  1. AVELOX [Suspect]
     Dosage: 400 MG, QD
     Dates: start: 20110307, end: 20110307

REACTIONS (3)
  - PRURITUS GENERALISED [None]
  - EYE SWELLING [None]
  - DYSPNOEA [None]
